FAERS Safety Report 16400127 (Version 11)
Quarter: 2024Q2

REPORT INFORMATION
  Report Type: Spontaneous
  Country: NL (occurrence: NL)
  Receive Date: 20190606
  Receipt Date: 20240401
  Transmission Date: 20240715
  Serious: Yes (Death, Other)
  Sender: FDA-Public Use
  Company Number: NL-ASPEN-GLO2018NL012530

PATIENT
  Age: 19 Year
  Sex: Male

DRUGS (21)
  1. LEVETIRACETAM [Suspect]
     Active Substance: LEVETIRACETAM
     Indication: Epilepsy
     Dosage: UNK
     Route: 065
  2. LEVETIRACETAM [Suspect]
     Active Substance: LEVETIRACETAM
     Indication: Myoclonus
  3. LEVETIRACETAM [Suspect]
     Active Substance: LEVETIRACETAM
     Indication: Seizure
  4. PHENYTOIN [Suspect]
     Active Substance: PHENYTOIN
     Indication: Epilepsy
     Dosage: UNK
     Route: 065
  5. REMIFENTANIL [Suspect]
     Active Substance: REMIFENTANIL
     Indication: Sedative therapy
     Dosage: UNK
     Route: 065
  6. PHENYTOIN [Suspect]
     Active Substance: PHENYTOIN
     Indication: Seizure
     Dosage: UNK
     Route: 065
  7. PHENYTOIN [Suspect]
     Active Substance: PHENYTOIN
     Indication: Epilepsy
  8. PROPOFOL [Suspect]
     Active Substance: PROPOFOL
     Indication: Seizure
     Dosage: UNK
     Route: 065
  9. PROPOFOL [Suspect]
     Active Substance: PROPOFOL
     Indication: Myoclonus
  10. PROPOFOL [Suspect]
     Active Substance: PROPOFOL
     Indication: Epilepsy
  11. THIOPENTAL [Suspect]
     Active Substance: THIOPENTAL
     Indication: Seizure
     Dosage: UNK
     Route: 065
  12. THIOPENTAL [Suspect]
     Active Substance: THIOPENTAL
     Indication: Epilepsy
  13. VALPROATE [Suspect]
     Active Substance: VALPROIC ACID
     Indication: Seizure
     Dosage: UNK
     Route: 065
  14. VALPROATE [Suspect]
     Active Substance: VALPROIC ACID
     Indication: Epilepsy
  15. MIDAZOLAM [Suspect]
     Active Substance: MIDAZOLAM
     Indication: Epilepsy
     Dosage: UNK
     Route: 065
  16. MIDAZOLAM [Suspect]
     Active Substance: MIDAZOLAM
     Indication: Sedative therapy
  17. DOBUTAMINE [Concomitant]
     Active Substance: DOBUTAMINE HYDROCHLORIDE
     Indication: Cardiac arrest
     Dosage: UNK
     Route: 065
  18. VASOPRESSIN [Concomitant]
     Active Substance: VASOPRESSIN
     Dosage: UNK
     Route: 065
  19. ENOXIMONE [Concomitant]
     Active Substance: ENOXIMONE
     Indication: Cardiac arrest
     Dosage: UNK
     Route: 065
  20. ARIPIPRAZOLE [Concomitant]
     Active Substance: ARIPIPRAZOLE
     Indication: Psychotic symptom
     Dosage: UNK
     Route: 065
  21. NITROGLYCERIN [Concomitant]
     Active Substance: NITROGLYCERIN
     Indication: Cardiac arrest
     Dosage: UNK
     Route: 065

REACTIONS (6)
  - Status epilepticus [Fatal]
  - Diabetes insipidus [Fatal]
  - Drug ineffective [Fatal]
  - Off label use [Fatal]
  - Drug ineffective for unapproved indication [Unknown]
  - Intentional product misuse [Unknown]
